FAERS Safety Report 7724570-0 (Version None)
Quarter: 2011Q3

REPORT INFORMATION
  Report Type: 
  Country: None (occurrence: None)
  Receive Date: 20110829
  Receipt Date: 20110818
  Transmission Date: 20111222
  Serious: Yes (Other)
  Sender: FDA-Public Use
  Company Number: TPA2011A05033

PATIENT
  Age: 56 Year
  Sex: Male

DRUGS (3)
  1. ACTOS [Suspect]
     Indication: TYPE 2 DIABETES MELLITUS
     Dosage: 30 MG,1 IN 1 D, PER ORAL
     Route: 048
     Dates: start: 20070818
  2. METFORMIN HCL [Concomitant]
  3. GLIMEPIRIDE [Concomitant]

REACTIONS (1)
  - PROSTATE CANCER [None]
